FAERS Safety Report 7425591-8 (Version None)
Quarter: 2011Q2

REPORT INFORMATION
  Report Type: 
  Country: None (occurrence: None)
  Receive Date: 20110420
  Receipt Date: 20100716
  Transmission Date: 20111010
  Serious: No
  Sender: FDA-Public Use
  Company Number: US-ASTRAZENECA-2008UW17639

PATIENT
  Age: 80 Year
  Sex: Male
  Weight: 94.3 kg

DRUGS (2)
  1. ASPIRIN [Concomitant]
  2. CASODEX [Suspect]
     Indication: PROSTATE CANCER
     Route: 048

REACTIONS (7)
  - BREAST ENLARGEMENT [None]
  - BREAST TENDERNESS [None]
  - SKIN LESION [None]
  - DYSURIA [None]
  - BREAST SWELLING [None]
  - URINARY RETENTION [None]
  - BLOOD GLUCOSE FLUCTUATION [None]
